FAERS Safety Report 25632558 (Version 1)
Quarter: 2025Q3

REPORT INFORMATION
  Report Type: Spontaneous
  Country: US (occurrence: US)
  Receive Date: 20250801
  Receipt Date: 20250801
  Transmission Date: 20251020
  Serious: No
  Sender: GRIFOLS
  Company Number: US-IGSA-BIG0014846

PATIENT
  Sex: Female

DRUGS (24)
  1. GAMUNEX-C [Suspect]
     Active Substance: HUMAN IMMUNOGLOBULIN G
     Indication: Mast cell activation syndrome
     Dosage: 12 GRAM, Q.WK.
     Route: 058
     Dates: start: 2019
  2. GAMUNEX-C [Suspect]
     Active Substance: HUMAN IMMUNOGLOBULIN G
     Indication: Immunodeficiency
     Dosage: 12 GRAM, Q.WK.
     Route: 058
  3. CYCLOBENZAPRINE [Concomitant]
     Active Substance: CYCLOBENZAPRINE
  4. FENTANYL [Concomitant]
     Active Substance: FENTANYL
  5. INDOMETHACIN [Concomitant]
     Active Substance: INDOMETHACIN
  6. TIZANIDINE [Concomitant]
     Active Substance: TIZANIDINE
  7. CIPROFLOXACIN HYDROCHLORIDE [Concomitant]
     Active Substance: CIPROFLOXACIN HYDROCHLORIDE
  8. AMANTADINE [Concomitant]
     Active Substance: AMANTADINE
  9. ASPIRIN [Concomitant]
     Active Substance: ASPIRIN
  10. AZELASTINE [Concomitant]
     Active Substance: AZELASTINE
  11. BUDESONIDE [Concomitant]
     Active Substance: BUDESONIDE
  12. CALCIUM\VITAMIN D [Concomitant]
     Active Substance: CALCIUM\VITAMIN D
  13. CAMBIA [Concomitant]
     Active Substance: DICLOFENAC POTASSIUM
  14. CARAFATE [Concomitant]
     Active Substance: SUCRALFATE
  15. PINDOLOL [Concomitant]
     Active Substance: PINDOLOL
  16. PROAIR HFA [Concomitant]
     Active Substance: ALBUTEROL SULFATE
  17. REGLAN [Concomitant]
     Active Substance: METOCLOPRAMIDE HYDROCHLORIDE
  18. SEROQUEL [Concomitant]
     Active Substance: QUETIAPINE FUMARATE
  19. SINGULAIR [Concomitant]
     Active Substance: MONTELUKAST SODIUM
  20. VITAMIN D3 [Concomitant]
     Active Substance: CHOLECALCIFEROL
  21. DICLOFENAC POTASSIUM [Concomitant]
     Active Substance: DICLOFENAC POTASSIUM
  22. ZITHROMAX [Concomitant]
     Active Substance: AZITHROMYCIN DIHYDRATE
  23. ZYRTEC [Concomitant]
     Active Substance: CETIRIZINE HYDROCHLORIDE
  24. CORTISONE [Concomitant]
     Active Substance: CORTISONE
     Indication: Rash

REACTIONS (11)
  - Injection site swelling [Recovered/Resolved]
  - Injection site erythema [Recovered/Resolved]
  - Fatigue [Recovered/Resolved]
  - Sinusitis [Recovered/Resolved]
  - Nail infection [Recovered/Resolved]
  - Impaired healing [Recovered/Resolved]
  - Post procedural swelling [Recovered/Resolved]
  - Post procedural erythema [Recovered/Resolved]
  - Post procedural haemorrhage [Recovered/Resolved]
  - Bronchitis [Recovered/Resolved]
  - Allergy to metals [Unknown]
